FAERS Safety Report 23926322 (Version 3)
Quarter: 2025Q2

REPORT INFORMATION
  Report Type: Spontaneous
  Country: JP (occurrence: JP)
  Receive Date: 20240531
  Receipt Date: 20250522
  Transmission Date: 20250716
  Serious: Yes (Hospitalization, Disabling)
  Sender: ELI LILLY AND COMPANY
  Company Number: JP-ELI_LILLY_AND_COMPANY-JP202404016719AA

PATIENT
  Age: 63 Year
  Sex: Female
  Weight: 59 kg

DRUGS (7)
  1. OLUMIANT [Suspect]
     Active Substance: BARICITINIB
     Indication: Still^s disease
     Dosage: 4 MG, DAILY
     Route: 048
     Dates: start: 202201
  2. OLUMIANT [Suspect]
     Active Substance: BARICITINIB
     Indication: Haemophagocytic lymphohistiocytosis
  3. NEORAL [Suspect]
     Active Substance: CYCLOSPORINE
     Indication: Still^s disease
     Route: 048
     Dates: start: 20220605
  4. METHYLPREDNISOLONE [Concomitant]
     Active Substance: METHYLPREDNISOLONE
     Indication: Still^s disease
  5. PREDNISOLONE [Concomitant]
     Active Substance: PREDNISOLONE
     Indication: Still^s disease
     Dosage: 120 MG, DAILY
  6. DEXAMETHASONE [Concomitant]
     Active Substance: DEXAMETHASONE
     Indication: Still^s disease
     Dosage: 8 MG, DAILY
  7. IMMUNE GLOBULIN NOS [Concomitant]
     Active Substance: IMMUNE GLOBULIN NOS
     Indication: Still^s disease
     Route: 042

REACTIONS (4)
  - Alveolar proteinosis [Recovered/Resolved]
  - Off label use [Unknown]
  - Pyrexia [Unknown]
  - Pneumonia [Unknown]

NARRATIVE: CASE EVENT DATE: 20220101
